FAERS Safety Report 9205412 (Version 1)
Quarter: 2013Q2

REPORT INFORMATION
  Report Type: Spontaneous
  Country: US (occurrence: US)
  Receive Date: 20130402
  Receipt Date: 20130402
  Transmission Date: 20140414
  Serious: No
  Sender: FDA-Public Use
  Company Number: US-009507513-1303USA013186

PATIENT
  Age: 30 Year
  Sex: Female
  Weight: 104.31 kg

DRUGS (4)
  1. IMPLANON [Suspect]
     Indication: CONTRACEPTION
     Dosage: 1 ROD UP TO 3 YEARS
     Route: 059
     Dates: start: 20110325
  2. AMITRIPTYLINE HYDROCHLORIDE [Concomitant]
     Dosage: 1 DAILY
  3. ZONISAMIDE [Concomitant]
     Dosage: 1 DAILY
  4. CELEXA [Concomitant]
     Dosage: 1 DAILY

REACTIONS (2)
  - Amenorrhoea [Unknown]
  - Weight increased [Unknown]
